FAERS Safety Report 18010663 (Version 1)
Quarter: 2020Q3

REPORT INFORMATION
  Report Type: Other
  Country: US (occurrence: US)
  Receive Date: 20200710
  Receipt Date: 20200710
  Transmission Date: 20201103
  Serious: No
  Sender: FDA-Public Use
  Company Number: US-CSPC OUYI PHARMACEUTICAL CO., LTD.-2087247

PATIENT

DRUGS (1)
  1. METFORMIN HYDROCHLORIDE EXTEND?RELEASE [Suspect]
     Active Substance: METFORMIN HYDROCHLORIDE

REACTIONS (5)
  - Product taste abnormal [Unknown]
  - Abdominal discomfort [Unknown]
  - Drooling [Unknown]
  - Dizziness [Unknown]
  - Disorientation [Unknown]
